FAERS Safety Report 4310048-3 (Version None)
Quarter: 2004Q1

REPORT INFORMATION
  Report Type: 
  Country: None (occurrence: None)
  Receive Date: 20040301
  Receipt Date: 20031222
  Transmission Date: 20041129
  Serious: No
  Sender: FDA-Public Use
  Company Number: WAES 0310USA01226

PATIENT
  Age: 71 Year
  Sex: Female
  Weight: 63.9572 kg

DRUGS (4)
  1. ZETIA [Suspect]
     Indication: HYPERCHOLESTEROLAEMIA
     Dosage: PO
     Route: 048
  2. PREMARIN [Concomitant]
  3. ASPIRIN [Concomitant]
  4. ATENOLOL [Concomitant]

REACTIONS (2)
  - ALOPECIA [None]
  - FATIGUE [None]
